FAERS Safety Report 6012582-7 (Version None)
Quarter: 2008Q4

REPORT INFORMATION
  Report Type: 
  Country: None (occurrence: None)
  Receive Date: 20081218
  Receipt Date: 20081210
  Transmission Date: 20090506
  Serious: Yes (Other)
  Sender: FDA-Public Use
  Company Number: US-GENENTECH-271895

PATIENT
  Sex: Female
  Weight: 88.889 kg

DRUGS (3)
  1. AVASTIN [Suspect]
     Indication: BREAST CANCER METASTATIC
     Dosage: 904 MG, Q2W
     Route: 042
     Dates: start: 20080923
  2. ABRAXANE [Concomitant]
     Indication: BREAST CANCER METASTATIC
     Dosage: 195 MG, 1/WEEK
  3. ZOMETA [Concomitant]
     Indication: DRUG USE FOR UNKNOWN INDICATION
     Dosage: 4 MG, 1/MONTH

REACTIONS (1)
  - CATHETER SITE EROSION [None]
